FAERS Safety Report 6008034-0 (Version None)
Quarter: 2008Q4

REPORT INFORMATION
  Report Type: 
  Country: None (occurrence: None)
  Receive Date: 20081217
  Receipt Date: 20080811
  Transmission Date: 20090506
  Serious: No
  Sender: FDA-Public Use
  Company Number: US-ASTRAZENECA-2008UW15825

PATIENT
  Age: 43 Year

DRUGS (2)
  1. CRESTOR [Suspect]
     Route: 048
     Dates: start: 20080806
  2. METFORMIN HCL [Concomitant]

REACTIONS (4)
  - CHEST DISCOMFORT [None]
  - DIZZINESS [None]
  - FEELING HOT [None]
  - HEADACHE [None]
